FAERS Safety Report 5907275-8 (Version None)
Quarter: 2008Q4

REPORT INFORMATION
  Report Type: 
  Country: None (occurrence: None)
  Receive Date: 20081003
  Receipt Date: 20080929
  Transmission Date: 20090506
  Serious: Yes (Other)
  Sender: FDA-Public Use
  Company Number: PHEH2008US08698

PATIENT
  Sex: Female

DRUGS (3)
  1. ZOMETA [Suspect]
     Indication: RESORPTION BONE INCREASED
     Dosage: UNK
     Dates: start: 20040101, end: 20070101
  2. ZOMETA [Suspect]
     Indication: OSTEOPOROSIS
  3. FOSAMAX [Suspect]
     Dosage: UNK
     Dates: start: 19980101, end: 20070101

REACTIONS (7)
  - ANHEDONIA [None]
  - ANXIETY [None]
  - CONDITION AGGRAVATED [None]
  - EMOTIONAL DISTRESS [None]
  - INJURY [None]
  - OSTEONECROSIS [None]
  - PAIN [None]
